FAERS Safety Report 7086874-7 (Version None)
Quarter: 2010Q4

REPORT INFORMATION
  Report Type: 
  Country: None (occurrence: None)
  Receive Date: 20101105
  Receipt Date: 20101101
  Transmission Date: 20110411
  Serious: Yes (Death)
  Sender: FDA-Public Use
  Company Number: PHHY2010IN73183

PATIENT
  Sex: Male

DRUGS (1)
  1. ASUNRA [Suspect]
     Dosage: 4000 MG, UNK

REACTIONS (2)
  - HYPERTENSION [None]
  - LUNG INFECTION [None]
